FAERS Safety Report 19957682 (Version 2)
Quarter: 2023Q4

REPORT INFORMATION
  Report Type: Report from Study
  Country: FR (occurrence: None)
  Receive Date: 20211015
  Receipt Date: 20231017
  Transmission Date: 20240110
  Serious: Yes (Death, Hospitalization)
  Sender: FDA-Public Use
  Company Number: FR-ROCHE-2929669

PATIENT
  Age: 72 Year
  Sex: Female
  Weight: 108 kg

DRUGS (2)
  1. BEVACIZUMAB [Suspect]
     Active Substance: BEVACIZUMAB
     Indication: Ovarian cancer
     Dosage: ON 07/MAR/2018, THE MOST RECENT DOSE OF BEVACIZUMAB WAS TAKEN PRIOR TO EVENT ONSET.
     Route: 042
     Dates: start: 20170403, end: 20180307
  2. OLAPARIB [Suspect]
     Active Substance: OLAPARIB
     Indication: Ovarian cancer
     Dosage: ON 02/APR/2019, THE MOST RECENT DOSE OF BLINDED OLAPARIB WAS TAKEN PRIOR TO EVENT ONSET.
     Route: 048
     Dates: start: 20170403, end: 20190402

REACTIONS (1)
  - Lung adenocarcinoma [Fatal]

NARRATIVE: CASE EVENT DATE: 20201130
